FAERS Safety Report 18819114 (Version 1)
Quarter: 2021Q1

REPORT INFORMATION
  Report Type: Spontaneous
  Country: LT (occurrence: LT)
  Receive Date: 20210201
  Receipt Date: 20210201
  Transmission Date: 20210419
  Serious: Yes (Hospitalization)
  Sender: FDA-Public Use
  Company Number: LT-GLAXOSMITHKLINE-LT2021EME013211

PATIENT
  Age: 11 Year
  Sex: Male

DRUGS (9)
  1. TOPIRAMATE. [Suspect]
     Active Substance: TOPIRAMATE
     Indication: EPILEPSY
     Dosage: UNK
  2. METHYLPREDNISOLONE. [Concomitant]
     Active Substance: METHYLPREDNISOLONE
     Dosage: 250 MG (MONTHLY)
     Route: 042
  3. LAMOTRIGINE. [Suspect]
     Active Substance: LAMOTRIGINE
     Indication: EPILEPSY
     Dosage: UNK
  4. LEVETIRACETAM. [Suspect]
     Active Substance: LEVETIRACETAM
     Indication: EPILEPSY
     Dosage: UNK
  5. VIGABATRIN. [Suspect]
     Active Substance: VIGABATRIN
     Indication: EPILEPSY
  6. VALPROATE [Suspect]
     Active Substance: VALPROIC ACID
     Indication: EPILEPSY
     Dosage: UNK
  7. METHYLPREDNISOLONE. [Concomitant]
     Active Substance: METHYLPREDNISOLONE
     Indication: EPILEPSY
     Dosage: UNK
     Route: 042
  8. METHYLPREDNISOLONE. [Concomitant]
     Active Substance: METHYLPREDNISOLONE
     Dosage: 250 MG
     Route: 042
  9. DIAZEPAM. [Suspect]
     Active Substance: DIAZEPAM
     Indication: EPILEPSY
     Dosage: UNK
     Route: 054

REACTIONS (6)
  - Drug resistance [Unknown]
  - Fatigue [Unknown]
  - Rash [Unknown]
  - Decreased appetite [Unknown]
  - Dehydration [Unknown]
  - Drug ineffective [Unknown]
